FAERS Safety Report 4856311-9 (Version None)
Quarter: 2005Q4

REPORT INFORMATION
  Report Type: 
  Country: None (occurrence: None)
  Receive Date: 20051219
  Receipt Date: 20051208
  Transmission Date: 20060501
  Serious: Yes (Hospitalization)
  Sender: FDA-Public Use
  Company Number: FR-JNJFOC-20051202547

PATIENT
  Age: 71 Year
  Sex: Female

DRUGS (13)
  1. REMICADE [Suspect]
     Dosage: 33RD INFUSION
     Route: 042
  2. REMICADE [Suspect]
     Dosage: 32ND INFUSION
     Route: 042
  3. REMICADE [Suspect]
     Indication: RHEUMATOID ARTHRITIS
     Dosage: 1ST INFUSION
     Route: 042
  4. NOVATREX [Suspect]
     Indication: RHEUMATOID ARTHRITIS
     Route: 048
  5. NAPROSYN [Suspect]
     Indication: RHEUMATOID ARTHRITIS
     Route: 048
  6. SPECIAFOLDINE [Concomitant]
  7. MOPRAL [Concomitant]
  8. ACTONEL [Concomitant]
  9. IDEOS [Concomitant]
  10. IDEOS [Concomitant]
  11. ZALDIAR [Concomitant]
  12. LOZOL [Concomitant]
  13. LOZOL [Concomitant]

REACTIONS (2)
  - APPENDICITIS [None]
  - PERITONITIS [None]
